FAERS Safety Report 5961144-6 (Version None)
Quarter: 2008Q4

REPORT INFORMATION
  Report Type: 
  Country: None (occurrence: None)
  Receive Date: 20081121
  Receipt Date: 20081114
  Transmission Date: 20090506
  Serious: Yes (Hospitalization)
  Sender: FDA-Public Use
  Company Number: US-JNJFOC-20081103898

PATIENT
  Sex: Male
  Weight: 68.04 kg

DRUGS (10)
  1. DURAGESIC-100 [Suspect]
     Route: 062
  2. DURAGESIC-100 [Suspect]
     Indication: BACK PAIN
     Route: 062
  3. ANTARA (MICRONIZED) [Suspect]
     Indication: BLOOD CHOLESTEROL
     Route: 048
  4. VICODIN [Concomitant]
     Indication: BACK PAIN
     Route: 048
  5. ULTRAM [Concomitant]
     Indication: PAIN
     Route: 048
  6. OMEPRAZOLE [Concomitant]
     Route: 048
  7. DETROL LA [Concomitant]
     Indication: POLYURIA
     Route: 048
  8. ASPIRIN [Concomitant]
     Indication: ANTICOAGULANT THERAPY
     Route: 048
  9. TRAZODONE HCL [Concomitant]
     Route: 048
  10. LYRICA [Concomitant]
     Indication: PAIN
     Route: 048

REACTIONS (10)
  - BACK PAIN [None]
  - DIZZINESS [None]
  - DYSPNOEA [None]
  - FEELING ABNORMAL [None]
  - INCORRECT DRUG ADMINISTRATION DURATION [None]
  - JOINT LOCK [None]
  - MALAISE [None]
  - MYOCARDIAL INFARCTION [None]
  - PAIN IN EXTREMITY [None]
  - TRIGGER FINGER [None]
